FAERS Safety Report 18564337 (Version 1)
Quarter: 2020Q4

REPORT INFORMATION
  Report Type: Spontaneous
  Country: US (occurrence: US)
  Receive Date: 20201130
  Receipt Date: 20201130
  Transmission Date: 20210114
  Serious: Yes (Death)
  Sender: FDA-Public Use
  Company Number: None

PATIENT
  Age: 68 Year
  Sex: Male

DRUGS (3)
  1. ERIVEDGE [Suspect]
     Active Substance: VISMODEGIB
     Indication: BASAL CELL CARCINOMA
     Route: 048
     Dates: start: 20191211, end: 20201116
  2. METOPROLOL. [Concomitant]
     Active Substance: METOPROLOL
     Dates: start: 20191206
  3. HYDRALZINE [Concomitant]
     Dates: start: 20191206

REACTIONS (1)
  - Death [None]

NARRATIVE: CASE EVENT DATE: 20201116
